FAERS Safety Report 9037289 (Version 1)
Quarter: 2013Q1

REPORT INFORMATION
  Report Type: Spontaneous
  Country: US (occurrence: None)
  Receive Date: 20130123
  Receipt Date: 20130123
  Transmission Date: 20140127
  Serious: Yes (Hospitalization)
  Sender: FDA-Public Use
  Company Number: None

PATIENT
  Age: 54 Year
  Sex: Female
  Weight: 53.52 kg

DRUGS (2)
  1. ROCEPHIN [Suspect]
     Indication: TOOTH ABSCESS
     Dosage: ONE GRAM INJECTION
     Dates: start: 20121231, end: 20121231
  2. ROCEPHIN [Suspect]
     Indication: INFECTION
     Dosage: ONE GRAM INJECTION
     Dates: start: 20121231, end: 20121231

REACTIONS (5)
  - Dizziness [None]
  - Nausea [None]
  - Vomiting [None]
  - Blood pressure decreased [None]
  - Presyncope [None]
